FAERS Safety Report 8150852-7 (Version None)
Quarter: 2012Q1

REPORT INFORMATION
  Report Type: 
  Country: None (occurrence: None)
  Receive Date: 20120220
  Receipt Date: 20120207
  Transmission Date: 20120608
  Serious: Yes (Other)
  Sender: FDA-Public Use
  Company Number: US-ELI_LILLY_AND_COMPANY-US200901001866

PATIENT
  Sex: Female
  Weight: 120.18 kg

DRUGS (1)
  1. ZYPREXA [Suspect]
     Dates: start: 20000420

REACTIONS (5)
  - DIABETES MELLITUS [None]
  - WEIGHT INCREASED [None]
  - VISUAL IMPAIRMENT [None]
  - MENISCUS LESION [None]
  - BLOOD CHOLESTEROL INCREASED [None]
